FAERS Safety Report 6260336-9 (Version None)
Quarter: 2009Q3

REPORT INFORMATION
  Report Type: 
  Country: None (occurrence: None)
  Receive Date: 20090708
  Receipt Date: 20090626
  Transmission Date: 20100115
  Serious: Yes (Hospitalization)
  Sender: FDA-Public Use
  Company Number: PHHY2009GB20945

PATIENT
  Sex: Male

DRUGS (7)
  1. CLOZARIL [Suspect]
     Indication: SCHIZOPHRENIA
     Dosage: UNK
     Route: 048
     Dates: start: 20020513, end: 20071115
  2. CLOZARIL [Suspect]
     Dosage: 900 MG, ONCE/SINGLE
     Dates: start: 20090523
  3. OLANZAPINE [Suspect]
  4. CHLORPROMAZINE [Suspect]
  5. DIAZEPAM [Suspect]
  6. VENLAFAXINE HYDROCHLORIDE [Suspect]
  7. ALCOHOL [Suspect]

REACTIONS (6)
  - INSOMNIA [None]
  - INTENTIONAL OVERDOSE [None]
  - MENTAL STATUS CHANGES [None]
  - PARANOIA [None]
  - SUICIDAL IDEATION [None]
  - THINKING ABNORMAL [None]
